FAERS Safety Report 5757556-6 (Version None)
Quarter: 2008Q2

REPORT INFORMATION
  Report Type: 
  Country: None (occurrence: None)
  Receive Date: 20080603
  Receipt Date: 20080527
  Transmission Date: 20081010
  Serious: Yes (Hospitalization, Other)
  Sender: FDA-Public Use
  Company Number: DE-PFIZER INC-2007053902

PATIENT
  Sex: Male
  Weight: 73 kg

DRUGS (4)
  1. SORTIS [Suspect]
     Indication: HYPERCHOLESTEROLAEMIA
     Dosage: DAILY DOSE:10MG
     Route: 048
     Dates: start: 19980801, end: 20060701
  2. SORTIS [Suspect]
     Dosage: DAILY DOSE:20MG
     Route: 048
  3. SIFROL [Suspect]
     Indication: PARKINSON'S DISEASE
     Route: 048
  4. GODAMED [Concomitant]
     Route: 048

REACTIONS (6)
  - AMYOTROPHIC LATERAL SCLEROSIS [None]
  - DYSPHAGIA [None]
  - HORDEOLUM [None]
  - MUSCLE SPASMS [None]
  - MYALGIA [None]
  - PARKINSON'S DISEASE [None]
